FAERS Safety Report 8030045-4 (Version None)
Quarter: 2012Q1

REPORT INFORMATION
  Report Type: 
  Country: None (occurrence: None)
  Receive Date: 20120105
  Receipt Date: 20111222
  Transmission Date: 20120608
  Serious: Yes (Other)
  Sender: FDA-Public Use
  Company Number: NSR_00333_2011

PATIENT
  Sex: Female
  Weight: 62.5964 kg

DRUGS (5)
  1. FLUOXETINE [Concomitant]
  2. FLUOXETINE [Suspect]
     Indication: DEPRESSION
     Dosage: (20 MG QD ORAL), (40 MG QD ORAL), (60 MG QD ORAL)
     Route: 048
     Dates: start: 20110801, end: 20110101
  3. FLUOXETINE [Suspect]
     Indication: DEPRESSION
     Dosage: (20 MG QD ORAL), (40 MG QD ORAL), (60 MG QD ORAL)
     Route: 048
     Dates: start: 20110101, end: 20110101
  4. FLUOXETINE [Suspect]
     Indication: DEPRESSION
     Dosage: (20 MG QD ORAL), (40 MG QD ORAL), (60 MG QD ORAL)
     Route: 048
     Dates: start: 20110101, end: 20110101
  5. SYNTHROID [Concomitant]

REACTIONS (6)
  - PRODUCT QUALITY ISSUE [None]
  - CONDITION AGGRAVATED [None]
  - DRUG INEFFECTIVE [None]
  - DEPRESSION [None]
  - FEELING ABNORMAL [None]
  - PRODUCT SUBSTITUTION ISSUE [None]
